FAERS Safety Report 19447263 (Version 5)
Quarter: 2021Q3

REPORT INFORMATION
  Report Type: Other
  Country: CA (occurrence: CA)
  Receive Date: 20210622
  Receipt Date: 20210912
  Transmission Date: 20211014
  Serious: Yes (Other)
  Sender: FDA-Public Use
  Company Number: CA-ROCHE-2527864

PATIENT
  Age: 15 Year
  Sex: Female

DRUGS (27)
  1. XOLAIR [Suspect]
     Active Substance: OMALIZUMAB
     Route: 058
     Dates: start: 20191109
  2. AERIUS [Concomitant]
     Dosage: BACK TO FULL DOSE
     Route: 065
  3. BENADRYL [Concomitant]
     Active Substance: DIPHENHYDRAMINE HYDROCHLORIDE
     Indication: PRODUCT USED FOR UNKNOWN INDICATION
     Route: 065
  4. XOLAIR [Suspect]
     Active Substance: OMALIZUMAB
     Route: 058
     Dates: start: 20191219
  5. XOLAIR [Suspect]
     Active Substance: OMALIZUMAB
     Route: 058
     Dates: start: 20210408
  6. XOLAIR [Suspect]
     Active Substance: OMALIZUMAB
     Route: 058
  7. XOLAIR [Suspect]
     Active Substance: OMALIZUMAB
     Route: 058
  8. BILASTINE [Concomitant]
     Active Substance: BILASTINE
     Dosage: BACK TO FULL DOSE
     Route: 065
  9. ATARAX [Concomitant]
     Active Substance: HYDROXYZINE HYDROCHLORIDE
     Indication: PRODUCT USED FOR UNKNOWN INDICATION
     Route: 065
  10. XOLAIR [Suspect]
     Active Substance: OMALIZUMAB
     Route: 058
     Dates: start: 20190329
  11. XOLAIR [Suspect]
     Active Substance: OMALIZUMAB
     Route: 058
     Dates: start: 20200128
  12. XOLAIR [Suspect]
     Active Substance: OMALIZUMAB
     Route: 058
  13. XOLAIR [Suspect]
     Active Substance: OMALIZUMAB
     Route: 058
  14. MONTELUKAST [Concomitant]
     Active Substance: MONTELUKAST SODIUM
     Indication: PRODUCT USED FOR UNKNOWN INDICATION
     Dosage: UNK
     Route: 065
     Dates: start: 201808
  15. AERIUS [Concomitant]
     Indication: PRODUCT USED FOR UNKNOWN INDICATION
     Dosage: UNK
     Route: 065
     Dates: start: 201801, end: 201808
  16. ZANTAC [Concomitant]
     Active Substance: RANITIDINE HYDROCHLORIDE
     Indication: PRODUCT USED FOR UNKNOWN INDICATION
     Dosage: UNK UNK, BID
     Route: 065
     Dates: start: 20180829, end: 2018
  17. CLARITINE [Concomitant]
     Active Substance: LORATADINE
     Indication: PRODUCT USED FOR UNKNOWN INDICATION
     Route: 065
  18. PREDNISONE. [Concomitant]
     Active Substance: PREDNISONE
     Indication: PRODUCT USED FOR UNKNOWN INDICATION
     Dosage: UNK
     Route: 065
  19. XOLAIR [Suspect]
     Active Substance: OMALIZUMAB
     Route: 058
     Dates: start: 20200214
  20. XOLAIR [Suspect]
     Active Substance: OMALIZUMAB
     Route: 058
     Dates: start: 20181112
  21. XOLAIR [Suspect]
     Active Substance: OMALIZUMAB
     Route: 058
     Dates: start: 20210610
  22. XOLAIR [Suspect]
     Active Substance: OMALIZUMAB
     Route: 058
  23. XOLAIR [Suspect]
     Active Substance: OMALIZUMAB
     Route: 058
  24. BILASTINE [Concomitant]
     Active Substance: BILASTINE
     Indication: PRODUCT USED FOR UNKNOWN INDICATION
     Dosage: UNK
     Route: 065
     Dates: start: 201808
  25. XOLAIR [Suspect]
     Active Substance: OMALIZUMAB
     Indication: CHRONIC SPONTANEOUS URTICARIA
     Route: 058
     Dates: start: 20181109
  26. XOLAIR [Suspect]
     Active Substance: OMALIZUMAB
     Route: 058
     Dates: start: 20181206
  27. XOLAIR [Suspect]
     Active Substance: OMALIZUMAB
     Route: 058

REACTIONS (30)
  - Arthralgia [Not Recovered/Not Resolved]
  - Lethargy [Not Recovered/Not Resolved]
  - Oropharyngeal pain [Unknown]
  - Malaise [Unknown]
  - Illness [Unknown]
  - Chronic spontaneous urticaria [Not Recovered/Not Resolved]
  - Anaphylactic reaction [Unknown]
  - Nasal congestion [Unknown]
  - Erythema [Unknown]
  - Product dose omission issue [Unknown]
  - Myalgia [Not Recovered/Not Resolved]
  - Inappropriate schedule of product administration [Unknown]
  - Blood pressure decreased [Unknown]
  - Dizziness [Unknown]
  - Pyrexia [Unknown]
  - Decreased appetite [Unknown]
  - Injection site extravasation [Unknown]
  - Drug ineffective [Unknown]
  - Bone pain [Unknown]
  - Sinusitis [Recovering/Resolving]
  - Wrist fracture [Unknown]
  - Nausea [Recovered/Resolved]
  - Rash [Unknown]
  - Feeling abnormal [Unknown]
  - Nasopharyngitis [Unknown]
  - Flushing [Unknown]
  - Syncope [Unknown]
  - Off label use [Unknown]
  - Swelling [Unknown]
  - Fatigue [Not Recovered/Not Resolved]

NARRATIVE: CASE EVENT DATE: 20181109
